FAERS Safety Report 18133137 (Version 2)
Quarter: 2020Q3

REPORT INFORMATION
  Report Type: Spontaneous
  Country: US (occurrence: US)
  Receive Date: 20200811
  Receipt Date: 20200821
  Transmission Date: 20201103
  Serious: Yes (Life-Threatening)
  Sender: FDA-Public Use
  Company Number: US-009507513-2008USA002229

PATIENT
  Age: 64 Year
  Sex: Male
  Weight: 86.1 kg

DRUGS (8)
  1. TAMSULOSIN HYDROCHLORIDE. [Concomitant]
     Active Substance: TAMSULOSIN HYDROCHLORIDE
     Dosage: 0.4 MILLIGRAM, QD
     Route: 048
  2. VALIUM [Concomitant]
     Active Substance: DIAZEPAM
     Dosage: UNK, PRN
  3. NOVAREL [Suspect]
     Active Substance: CHORIOGONADOTROPIN ALFA
     Indication: ANDROGEN DEFICIENCY
     Dosage: UNK
     Route: 030
     Dates: start: 20200428, end: 2020
  4. PREGNYL [Suspect]
     Active Substance: CHORIOGONADOTROPIN ALFA
     Indication: ANDROGEN DEFICIENCY
     Dosage: TWICE A WEEK (BIW), ROUTE REPORTED AS INJECTION
     Route: 030
     Dates: start: 20200428, end: 20200724
  5. TESTOSTERONE CYPIONATE. [Suspect]
     Active Substance: TESTOSTERONE CYPIONATE
     Dosage: 200 MILLIGRAM PER MILLILITRE
     Route: 030
     Dates: start: 20200428, end: 2020
  6. ANASTROZOLE. [Concomitant]
     Active Substance: ANASTROZOLE
     Dosage: UNK
     Dates: start: 2020
  7. ANASTROZOLE. [Concomitant]
     Active Substance: ANASTROZOLE
     Dosage: UNK
     Dates: start: 20200428, end: 2020
  8. TESTOSTERONE CYPIONATE. [Suspect]
     Active Substance: TESTOSTERONE CYPIONATE
     Dosage: UNK
     Dates: start: 2020

REACTIONS (13)
  - Feeding disorder [Recovered/Resolved]
  - Feeling abnormal [Recovering/Resolving]
  - Weight decreased [Recovered/Resolved]
  - Vomiting [Recovering/Resolving]
  - Blood testosterone increased [Unknown]
  - Blood oestrogen increased [Unknown]
  - Post-traumatic stress disorder [Recovered/Resolved]
  - Anxiety [Recovered/Resolved]
  - Chest pain [Recovered/Resolved]
  - Nausea [Recovering/Resolving]
  - Thinking abnormal [Recovered/Resolved]
  - Decreased appetite [Recovered/Resolved]
  - Illness [Recovering/Resolving]

NARRATIVE: CASE EVENT DATE: 2020
